FAERS Safety Report 5851712-4 (Version None)
Quarter: 2008Q3

REPORT INFORMATION
  Report Type: 
  Country: None (occurrence: None)
  Receive Date: 20080820
  Receipt Date: 20080731
  Transmission Date: 20090109
  Serious: No
  Sender: FDA-Public Use
  Company Number: US-BOEHRINGER INGELHEIM GMBH, GERMANY-2008-BP-12084BP

PATIENT
  Age: 73 Year
  Sex: Male

DRUGS (6)
  1. FLOMAX [Suspect]
  2. ATENOLOL [Concomitant]
     Dates: end: 20080716
  3. LIPITOR [Concomitant]
  4. CLONAZEPAM [Concomitant]
  5. PLAVIX [Concomitant]
  6. ASPIRIN [Concomitant]

REACTIONS (2)
  - DIZZINESS [None]
  - HYPOTENSION [None]
